FAERS Safety Report 20735751 (Version 1)
Quarter: 2022Q2

REPORT INFORMATION
  Report Type: Spontaneous
  Country: FR (occurrence: FR)
  Receive Date: 20220421
  Receipt Date: 20220421
  Transmission Date: 20220721
  Serious: Yes (Hospitalization)
  Sender: FDA-Public Use
  Company Number: None

PATIENT
  Age: 57 Year
  Sex: Male

DRUGS (2)
  1. TRAMADOL [Suspect]
     Active Substance: TRAMADOL
     Indication: Product used for unknown indication
     Dosage: UNK (2 TABLETS 100 MG LP PER DAY)
     Route: 048
  2. XANAX [Suspect]
     Active Substance: ALPRAZOLAM
     Indication: Product used for unknown indication
     Dosage: UNK, 1 BOX
     Route: 048

REACTIONS (6)
  - Hyperammonaemia [Recovered/Resolved]
  - Hepatic cytolysis [Recovered/Resolved]
  - Drug abuse [Not Recovered/Not Resolved]
  - Epilepsy [Recovered/Resolved with Sequelae]
  - Confusional state [Recovered/Resolved]
  - Withdrawal syndrome [Recovered/Resolved]

NARRATIVE: CASE EVENT DATE: 20210512
